FAERS Safety Report 7503786-2 (Version None)
Quarter: 2011Q2

REPORT INFORMATION
  Report Type: 
  Country: None (occurrence: None)
  Receive Date: 20110524
  Receipt Date: 20110524
  Transmission Date: 20111010
  Serious: Yes (Hospitalization)
  Sender: FDA-Public Use
  Company Number: None

PATIENT
  Age: 63 Year
  Sex: Male
  Weight: 85.9566 kg

DRUGS (9)
  1. OSCAL [Concomitant]
  2. IBPROFEN [Concomitant]
  3. PRAVASTATIN [Concomitant]
  4. AVELOX [Concomitant]
  5. ASPIRIN [Concomitant]
  6. AVALIDE [Concomitant]
  7. OMEPRAZOLE [Suspect]
     Indication: GASTROOESOPHAGEAL REFLUX DISEASE
     Dosage: 20MG BID PO O47
     Route: 048
     Dates: start: 20101027, end: 20110309
  8. METRONIDAZOLE [Concomitant]
  9. FLOVENT [Concomitant]

REACTIONS (8)
  - RESPIRATORY TRACT CONGESTION [None]
  - SINUSITIS [None]
  - HYPERHIDROSIS [None]
  - TUBULOINTERSTITIAL NEPHRITIS [None]
  - DEHYDRATION [None]
  - MICTURITION URGENCY [None]
  - RENAL FAILURE ACUTE [None]
  - CHILLS [None]
